FAERS Safety Report 7584602-X (Version None)
Quarter: 2011Q2

REPORT INFORMATION
  Report Type: 
  Country: None (occurrence: None)
  Receive Date: 20110630
  Receipt Date: 20110622
  Transmission Date: 20111010
  Serious: Yes (Hospitalization, Other)
  Sender: FDA-Public Use
  Company Number: US-US-EMD SERONO, INC.-7001020

PATIENT
  Sex: Female

DRUGS (10)
  1. METOPROLOL TARTRATE [Concomitant]
     Indication: HYPERTENSION
  2. CRESTOR [Concomitant]
  3. REBIF [Suspect]
     Route: 058
  4. FENTANYL-100 [Concomitant]
     Indication: PAIN
  5. EXFORGE [Concomitant]
     Indication: HYPERTENSION
  6. REBIF [Suspect]
     Indication: MULTIPLE SCLEROSIS
     Route: 058
     Dates: start: 20041117, end: 20110501
  7. GABAPENTIN [Concomitant]
     Indication: MUSCLE SPASMS
  8. ZOLOFT [Concomitant]
  9. REBIF [Suspect]
     Route: 058
  10. GABAPENTIN [Concomitant]
     Indication: PAIN

REACTIONS (16)
  - INJECTION SITE EXFOLIATION [None]
  - ANXIETY [None]
  - HYPOAESTHESIA [None]
  - IRRITABLE BOWEL SYNDROME [None]
  - SURGERY [None]
  - FEELING ABNORMAL [None]
  - HYPERTENSION [None]
  - VISION BLURRED [None]
  - INJECTION SITE PRURITUS [None]
  - VISUAL IMPAIRMENT [None]
  - PAIN IN EXTREMITY [None]
  - INJECTION SITE SCAR [None]
  - SPEECH DISORDER [None]
  - DISTRACTIBILITY [None]
  - ABDOMINAL DISCOMFORT [None]
  - HEPATIC ENZYME INCREASED [None]
